FAERS Safety Report 8172744-X (Version None)
Quarter: 2012Q1

REPORT INFORMATION
  Report Type: 
  Country: None (occurrence: None)
  Receive Date: 20120223
  Receipt Date: 20120216
  Transmission Date: 20120608
  Serious: Yes (Other)
  Sender: FDA-Public Use
  Company Number: TCI2012A00428

PATIENT
  Age: 60 Year
  Sex: Male

DRUGS (2)
  1. ACTOS [Suspect]
     Dosage: 15 MG (15 MG,1 D) PER ORAL
     Route: 048
     Dates: start: 20110303
  2. VECTIBIX [Suspect]
     Indication: COLORECTAL CANCER
     Dosage: 500 MG (500 MG,1 IN 2 WK) INTRAVENOUS DRIP
     Route: 041
     Dates: start: 20120117

REACTIONS (2)
  - BLADDER CANCER [None]
  - CALCULUS URINARY [None]
